FAERS Safety Report 7581960-7 (Version None)
Quarter: 2011Q2

REPORT INFORMATION
  Report Type: 
  Country: None (occurrence: None)
  Receive Date: 20110630
  Receipt Date: 20110620
  Transmission Date: 20111010
  Serious: Yes (Hospitalization)
  Sender: FDA-Public Use
  Company Number: DE-BIOGENIDEC-2010BI038559

PATIENT
  Age: 52 Year
  Sex: Female
  Weight: 77 kg

DRUGS (9)
  1. OMACOR [Concomitant]
  2. TYSABRI [Suspect]
     Indication: MULTIPLE SCLEROSIS
     Route: 042
     Dates: start: 20071218, end: 20100901
  3. MAGNESIUM [Concomitant]
     Indication: MUSCLE SPASMS
  4. ERGOCALCIFEROL [Concomitant]
  5. THYRONAJOD [Concomitant]
     Indication: HYPOTHYROIDISM
  6. SIMVASTATIN [Concomitant]
     Indication: HYPERCHOLESTEROLAEMIA
  7. OPIPRAMOL [Concomitant]
  8. CALCIUM AND VITAMIN D [Concomitant]
     Indication: OSTEOPOROSIS PROPHYLAXIS
  9. TOLPERISON [Concomitant]
     Indication: MUSCLE SPASTICITY

REACTIONS (1)
  - INTERVERTEBRAL DISC PROTRUSION [None]
